FAERS Safety Report 16589128 (Version 1)
Quarter: 2019Q3

REPORT INFORMATION
  Report Type: Spontaneous
  Country: US (occurrence: US)
  Receive Date: 20190718
  Receipt Date: 20190718
  Transmission Date: 20191004
  Serious: Yes (Other)
  Sender: FDA-Public Use
  Company Number: US-GLAXOSMITHKLINE-US2019GSK125322

PATIENT
  Age: 63 Year
  Sex: Female

DRUGS (2)
  1. ZINNAT [Suspect]
     Active Substance: CEFUROXIME
     Indication: EYE DISORDER PROPHYLAXIS
  2. ZINNAT [Suspect]
     Active Substance: CEFUROXIME
     Indication: LENS EXTRACTION
     Dosage: UNK
     Route: 042

REACTIONS (7)
  - Macular oedema [Recovered/Resolved]
  - Serous retinal detachment [Recovered/Resolved]
  - Subretinal fluid [Recovered/Resolved]
  - Visual acuity tests abnormal [Recovering/Resolving]
  - Off label use [Unknown]
  - Retinal oedema [Unknown]
  - Retinoschisis [Unknown]
